FAERS Safety Report 9735204 (Version 2)
Quarter: 2013Q4

REPORT INFORMATION
  Report Type: Report from Study
  Country: JP (occurrence: JP)
  Receive Date: 20131206
  Receipt Date: 20131220
  Transmission Date: 20140711
  Serious: Yes (Death)
  Sender: FDA-Public Use
  Company Number: JP-PFIZER INC-2013344875

PATIENT
  Age: 11 Month
  Sex: Male
  Weight: 5.5 kg

DRUGS (6)
  1. REVATIO [Suspect]
     Indication: PULMONARY ARTERIAL HYPERTENSION
     Dosage: 2 MG, 4X/DAY
     Route: 048
     Dates: start: 20110513, end: 20111127
  2. ASPIRIN [Concomitant]
     Dosage: UNK
     Route: 048
     Dates: end: 20111127
  3. LASIX [Concomitant]
     Indication: PULMONARY HYPERTENSION
     Dosage: UNK
     Route: 048
     Dates: end: 20111127
  4. ALDACTONE-A [Concomitant]
     Indication: PULMONARY HYPERTENSION
     Dosage: UNK
     Route: 048
     Dates: end: 20111127
  5. DIGOSIN [Concomitant]
     Dosage: UNK
     Route: 048
     Dates: end: 20110904
  6. CAPTORIL [Concomitant]
     Indication: PULMONARY HYPERTENSION
     Dosage: UNK
     Route: 048
     Dates: end: 20110905

REACTIONS (1)
  - Anomalous pulmonary venous connection [Fatal]
